FAERS Safety Report 4894216-8 (Version None)
Quarter: 2006Q1

REPORT INFORMATION
  Report Type: 
  Country: None (occurrence: None)
  Receive Date: 20060127
  Receipt Date: 20051025
  Transmission Date: 20060701
  Serious: No
  Sender: FDA-Public Use
  Company Number: US-GLAXOSMITHKLINE-A0579562A

PATIENT
  Age: 64 Year
  Sex: Female

DRUGS (12)
  1. WELLBUTRIN [Suspect]
     Indication: DEPRESSION
     Dosage: 100MG THREE TIMES PER DAY
     Route: 048
     Dates: start: 20041101
  2. WELLBUTRIN SR [Suspect]
     Indication: DEPRESSION
     Dosage: 150MG TWICE PER DAY
     Route: 048
     Dates: start: 20041101
  3. HYDROCHLOROTHIAZIDE [Concomitant]
  4. ENALAPRIL [Concomitant]
  5. DETROL LA [Concomitant]
  6. NEISVAC-C [Concomitant]
  7. ECOTRIN [Concomitant]
  8. METFORMIN [Concomitant]
  9. IBUPROFEN [Concomitant]
  10. WELCHOL [Concomitant]
  11. VITAMINS [Concomitant]
  12. LANTUS [Concomitant]

REACTIONS (5)
  - BLOOD GLUCOSE [None]
  - DECREASED APPETITE [None]
  - DRUG INEFFECTIVE [None]
  - ENERGY INCREASED [None]
  - WEIGHT DECREASED [None]
